FAERS Safety Report 21638121 (Version 1)
Quarter: 2022Q4

REPORT INFORMATION
  Report Type: Report from Study
  Country: US (occurrence: US)
  Receive Date: 20221124
  Receipt Date: 20221124
  Transmission Date: 20230113
  Serious: No
  Sender: FDA-Public Use
  Company Number: US-ABBVIE-22K-163-4528564-00

PATIENT
  Sex: Female

DRUGS (1)
  1. IMBRUVICA [Suspect]
     Active Substance: IBRUTINIB
     Indication: Non-Hodgkin^s lymphoma
     Route: 048
     Dates: start: 202109

REACTIONS (8)
  - Immunodeficiency [Unknown]
  - Presyncope [Unknown]
  - Sinusitis [Unknown]
  - Ear infection [Unknown]
  - COVID-19 [Unknown]
  - Hypersensitivity [Unknown]
  - Sinus disorder [Unknown]
  - Hyperhidrosis [Unknown]
